FAERS Safety Report 6346271-6 (Version None)
Quarter: 2009Q3

REPORT INFORMATION
  Report Type: 
  Country: None (occurrence: None)
  Receive Date: 20090909
  Receipt Date: 20090831
  Transmission Date: 20100115
  Serious: Yes (Other)
  Sender: FDA-Public Use
  Company Number: PHHY2009ZA36946

PATIENT

DRUGS (1)
  1. EXFORGE [Suspect]

REACTIONS (2)
  - SCOTOMA [None]
  - VISUAL IMPAIRMENT [None]
